FAERS Safety Report 10390260 (Version 2)
Quarter: 2014Q4

REPORT INFORMATION
  Report Type: Report from Study
  Country: BR (occurrence: BR)
  Receive Date: 20140818
  Receipt Date: 20141031
  Transmission Date: 20150528
  Serious: Yes (Disabling, Other)
  Sender: FDA-Public Use
  Company Number: BR-ABBVIE-14K-020-1270910-00

PATIENT
  Age: 26 Year
  Sex: Male
  Weight: 66 kg

DRUGS (2)
  1. DICLOFENAC SODIUM. [Concomitant]
     Active Substance: DICLOFENAC SODIUM
     Indication: PAIN
     Dosage: 1 OR 2 TABLET
     Route: 048
     Dates: start: 20020601, end: 20140701
  2. HUMIRA [Suspect]
     Active Substance: ADALIMUMAB
     Indication: ANKYLOSING SPONDYLITIS
     Route: 058
     Dates: start: 20120501, end: 201305

REACTIONS (7)
  - Gait disturbance [Recovering/Resolving]
  - Ankylosing spondylitis [Unknown]
  - Joint stiffness [Unknown]
  - Bone pain [Unknown]
  - Gait disturbance [Unknown]
  - Mobility decreased [Unknown]
  - Abasia [Recovering/Resolving]

NARRATIVE: CASE EVENT DATE: 201308
